FAERS Safety Report 6928928-9 (Version None)
Quarter: 2010Q3

REPORT INFORMATION
  Report Type: 
  Country: None (occurrence: None)
  Receive Date: 20100817
  Receipt Date: 20100806
  Transmission Date: 20110219
  Serious: Yes (Other)
  Sender: FDA-Public Use
  Company Number: BR-PFIZER INC-2010066596

PATIENT
  Age: 72 Year
  Sex: Female
  Weight: 56 kg

DRUGS (9)
  1. CHAMPIX [Suspect]
     Indication: TOBACCO USER
     Dosage: UNK
     Route: 048
     Dates: start: 20100506
  2. CHAMPIX [Suspect]
     Dosage: 1 MG, 1X/DAY
     Route: 048
     Dates: start: 20100510
  3. CHAMPIX [Suspect]
     Dosage: 1 MG, 2X/DAY,
     Route: 048
     Dates: start: 20100501, end: 20100101
  4. BROMOPRIDE [Concomitant]
     Dosage: UNK
  5. BUSCOPAN COMPOSITUM [Concomitant]
     Dosage: UNK
  6. RIVOTRIL [Concomitant]
     Indication: TREMOR
     Dosage: 1 MG, 2X/DAY (AT NIGHT)
  7. PROPRANOLOL [Concomitant]
     Indication: TREMOR
     Dosage: 400 MG, 3X/DAY
  8. OMEPRAZOLE [Concomitant]
     Indication: ABDOMINAL PAIN UPPER
     Dosage: 1 DAILY
  9. HYOSCINE BUTYLBROMIDE [Concomitant]

REACTIONS (2)
  - GASTROINTESTINAL DISORDER [None]
  - SUICIDAL IDEATION [None]
